FAERS Safety Report 8510195-6 (Version None)
Quarter: 2012Q3

REPORT INFORMATION
  Report Type: 
  Country: None (occurrence: None)
  Receive Date: 20120713
  Receipt Date: 20120711
  Transmission Date: 20120928
  Serious: Yes (Hospitalization)
  Sender: FDA-Public Use
  Company Number: US-TEVA-348196USA

PATIENT
  Age: 61 Year
  Sex: Male

DRUGS (1)
  1. TREANDA [Suspect]
     Indication: B-CELL LYMPHOMA
     Dosage: DAY 1 AND 2
     Route: 042

REACTIONS (4)
  - DYSPNOEA [None]
  - SEPTIC SHOCK [None]
  - ESCHERICHIA BACTERAEMIA [None]
  - PNEUMONIA [None]
